FAERS Safety Report 6609945-5 (Version None)
Quarter: 2010Q1

REPORT INFORMATION
  Report Type: 
  Country: None (occurrence: None)
  Receive Date: 20100302
  Receipt Date: 20100218
  Transmission Date: 20100710
  Serious: Yes (Hospitalization, Other)
  Sender: FDA-Public Use
  Company Number: PHEH2006US12162

PATIENT
  Sex: Female

DRUGS (32)
  1. AREDIA [Suspect]
     Indication: BONE DENSITY DECREASED
     Dosage: 90 MG, UNK
  2. DECADRON [Concomitant]
     Dosage: UNK
  3. AVANDIA [Concomitant]
     Dosage: UNK
  4. CIPRO [Concomitant]
     Dosage: UNK
  5. CLINDAMYCIN [Concomitant]
     Dosage: UNK
  6. LORAZEPAM [Concomitant]
     Dosage: UNK
  7. VANCOMYCIN [Concomitant]
     Dosage: UNK
  8. LEVAQUIN [Concomitant]
     Dosage: UNK
  9. PROCRIT                            /00909301/ [Concomitant]
     Dosage: UNK
  10. METRONIDAZOLE [Concomitant]
     Dosage: UNK
  11. QUININE SULFATE [Concomitant]
  12. OXYCONTIN [Concomitant]
  13. ATIVAN [Concomitant]
     Dosage: UNK
  14. OXYCODONE [Concomitant]
     Dosage: UNK
  15. VELCADE [Concomitant]
     Dosage: UNK
  16. K-DUR [Concomitant]
  17. LASIX [Concomitant]
     Dosage: UNK
  18. SYNTHROID [Concomitant]
     Dosage: UNK
  19. TRAZODONE HCL [Concomitant]
  20. PIRAMIDON [Concomitant]
     Dosage: UNK
  21. VALIUM [Concomitant]
  22. AMBIEN [Concomitant]
     Dosage: UNK
  23. PERCOCET [Concomitant]
     Dosage: UNK
  24. NEURONTIN [Concomitant]
     Dosage: UNK
  25. PRANDIN ^KUHN^ [Concomitant]
  26. FLAGYL [Concomitant]
  27. DYAZIDE [Concomitant]
  28. PREDNISONE TAB [Concomitant]
  29. PERIDEX [Concomitant]
  30. ZOFRAN [Concomitant]
  31. HUMALOG [Concomitant]
  32. LANTUS [Concomitant]

REACTIONS (48)
  - ANAEMIA [None]
  - ANXIETY [None]
  - ARTHROSCOPIC SURGERY [None]
  - BONE DISORDER [None]
  - CATARACT [None]
  - CATHETERISATION CARDIAC [None]
  - CELLULITIS [None]
  - CEREBROVASCULAR ACCIDENT [None]
  - CHOLELITHIASIS [None]
  - COLITIS ULCERATIVE [None]
  - EXCESSIVE GRANULATION TISSUE [None]
  - FALL [None]
  - GALLBLADDER ENLARGEMENT [None]
  - GINGIVAL EROSION [None]
  - HAEMATOCRIT DECREASED [None]
  - HAEMOGLOBIN DECREASED [None]
  - HEPATIC CIRRHOSIS [None]
  - HYPERBARIC OXYGEN THERAPY [None]
  - HYPERGLYCAEMIA [None]
  - HYPOTHYROIDISM [None]
  - IMPAIRED HEALING [None]
  - INCISIONAL DRAINAGE [None]
  - INJURY [None]
  - ISCHAEMIA [None]
  - LUMBAR SPINAL STENOSIS [None]
  - NEUROPATHY PERIPHERAL [None]
  - ORAL CANDIDIASIS [None]
  - ORAL CAVITY FISTULA [None]
  - OSTEOCHONDROSIS [None]
  - OSTEOMYELITIS [None]
  - OSTEONECROSIS [None]
  - PAIN [None]
  - PANCYTOPENIA [None]
  - PETECHIAE [None]
  - PHYSICAL DISABILITY [None]
  - PORTAL HYPERTENSION [None]
  - PURPURA [None]
  - RENAL DISORDER [None]
  - ROTATOR CUFF SYNDROME [None]
  - SENILE OSTEOPOROSIS [None]
  - SEQUESTRECTOMY [None]
  - SPINAL LAMINECTOMY [None]
  - SPLENOMEGALY [None]
  - SWELLING FACE [None]
  - THROMBOCYTOPENIA [None]
  - TOOTH EXTRACTION [None]
  - TRANSFUSION [None]
  - WOUND DEHISCENCE [None]
